FAERS Safety Report 8227454-7 (Version None)
Quarter: 2012Q1

REPORT INFORMATION
  Report Type: 
  Country: None (occurrence: None)
  Receive Date: 20120322
  Receipt Date: 20120321
  Transmission Date: 20120608
  Serious: Yes (Other)
  Sender: FDA-Public Use
  Company Number: US-BAYER-2012-027826

PATIENT
  Age: 50 Year
  Sex: Male

DRUGS (2)
  1. INSULIN [Concomitant]
  2. BETASERON [Suspect]
     Indication: RELAPSING-REMITTING MULTIPLE SCLEROSIS
     Dosage: 4 MIU, QOD
     Route: 058
     Dates: start: 20120305

REACTIONS (1)
  - BLOOD GLUCOSE INCREASED [None]
